FAERS Safety Report 4356521-3 (Version None)
Quarter: 2004Q2

REPORT INFORMATION
  Report Type: 
  Country: None (occurrence: None)
  Receive Date: 20040506
  Receipt Date: 20040429
  Transmission Date: 20050107
  Serious: Yes (Life-Threatening, Hospitalization)
  Sender: FDA-Public Use
  Company Number: 2002118737CH

PATIENT
  Age: 41 Year
  Sex: Male

DRUGS (14)
  1. CAMPTOSAR [Suspect]
     Indication: GLIOBLASTOMA MULTIFORME
     Dosage: SEE IMAGE
     Route: 042
     Dates: start: 20020523, end: 20020523
  2. CAMPTOSAR [Suspect]
     Indication: GLIOBLASTOMA MULTIFORME
     Dosage: SEE IMAGE
     Route: 042
     Dates: start: 20020613, end: 20020613
  3. CAMPTOSAR [Suspect]
     Indication: GLIOBLASTOMA MULTIFORME
     Dosage: SEE IMAGE
     Route: 042
     Dates: start: 20020704, end: 20020704
  4. CAMPTOSAR [Suspect]
     Indication: GLIOBLASTOMA MULTIFORME
     Dosage: SEE IMAGE
     Route: 042
     Dates: start: 20020627, end: 20020710
  5. TEMOZOLOMIDE    (TEMOZOLOMIDE) [Suspect]
     Indication: GLIOBLASTOMA MULTIFORME
     Dosage: 260 MG, CYCLIC, ORAL
     Route: 048
     Dates: start: 20020516, end: 20020529
  6. DEXAMETHASONE [Concomitant]
  7. ACETAMINOPHEN [Concomitant]
  8. MORPHINE [Concomitant]
  9. OMEPRAZOLE [Concomitant]
  10. CITALOPRAM HYDROBROMIDE [Concomitant]
  11. TRANXILIUM [Concomitant]
  12. ONDANSETRON HCL [Concomitant]
  13. ATROPINE [Concomitant]
  14. METOCLOPRAMIDE [Concomitant]

REACTIONS (11)
  - ALVEOLITIS [None]
  - BAND NEUTROPHIL PERCENTAGE INCREASED [None]
  - CEREBRAL HAEMORRHAGE [None]
  - DRUG HYPERSENSITIVITY [None]
  - DRUG TOXICITY [None]
  - LUNG INFILTRATION [None]
  - LYMPHOCYTE PERCENTAGE DECREASED [None]
  - MYOPATHY [None]
  - NEUTROPHIL PERCENTAGE DECREASED [None]
  - PNEUMONITIS [None]
  - PULMONARY FIBROSIS [None]
